FAERS Safety Report 5751097-8 (Version None)
Quarter: 2008Q2

REPORT INFORMATION
  Report Type: 
  Country: None (occurrence: None)
  Receive Date: 20080528
  Receipt Date: 20080513
  Transmission Date: 20081010
  Serious: Yes (Life-Threatening, Hospitalization)
  Sender: FDA-Public Use
  Company Number: GB-GENENTECH-250662

PATIENT
  Sex: Female

DRUGS (6)
  1. BEVACIZUMAB [Suspect]
     Indication: OVARIAN CANCER
     Dosage: 450 MG, Q3W
     Route: 042
     Dates: start: 20070404, end: 20070903
  2. PACLITAXEL [Suspect]
     Indication: OVARIAN CANCER
     Dosage: 282 MG, Q3W
     Route: 042
     Dates: start: 20070404, end: 20070718
  3. CARBOPLATIN [Suspect]
     Indication: OVARIAN CANCER
     Dosage: 560 MG, Q3W
     Route: 042
     Dates: start: 20070404, end: 20070718
  4. LISINOPRIL [Concomitant]
     Indication: DRUG USE FOR UNKNOWN INDICATION
     Dosage: 10 MG, QD
     Dates: start: 20070702
  5. ACETAMINOPHEN [Concomitant]
     Indication: DRUG USE FOR UNKNOWN INDICATION
     Dosage: 4 G, UNK
  6. LANSOPRAZOLE [Concomitant]
     Indication: DRUG USE FOR UNKNOWN INDICATION
     Dates: start: 20070406

REACTIONS (9)
  - ADHESION [None]
  - ANASTOMOTIC LEAK [None]
  - CLOSTRIDIUM DIFFICILE COLITIS [None]
  - DIARRHOEA [None]
  - ENTEROCUTANEOUS FISTULA [None]
  - INTESTINAL GANGRENE [None]
  - INTESTINAL ISCHAEMIA [None]
  - INTESTINAL OBSTRUCTION [None]
  - PELVIC ABSCESS [None]
